FAERS Safety Report 17129744 (Version 1)
Quarter: 2019Q4

REPORT INFORMATION
  Report Type: Spontaneous
  Country: PT (occurrence: PT)
  Receive Date: 20191209
  Receipt Date: 20191209
  Transmission Date: 20200122
  Serious: Yes (Hospitalization, Other)
  Sender: FDA-Public Use
  Company Number: NVSC2019PT059681

PATIENT
  Age: 67 Year
  Sex: Female

DRUGS (3)
  1. CIPROFLOXACIN. [Suspect]
     Active Substance: CIPROFLOXACIN
     Indication: MYCOBACTERIUM CHELONAE INFECTION
     Dosage: IN JUNE
     Route: 065
  2. SIMVASTATIN. [Suspect]
     Active Substance: SIMVASTATIN
     Indication: DYSLIPIDAEMIA
     Dosage: UNK
     Route: 065
  3. CLARITHROMYCIN. [Suspect]
     Active Substance: CLARITHROMYCIN
     Indication: MYCOBACTERIUM CHELONAE INFECTION
     Dosage: IN JUNE
     Route: 065

REACTIONS (9)
  - Acute kidney injury [Unknown]
  - Rhabdomyolysis [Unknown]
  - Hepatocellular injury [Unknown]
  - Oedema peripheral [Unknown]
  - Mycobacterium chelonae infection [Unknown]
  - Myalgia [Recovered/Resolved]
  - Quadriparesis [Recovering/Resolving]
  - Off label use [Unknown]
  - Myositis [Unknown]
